FAERS Safety Report 4339277-X (Version None)
Quarter: 2004Q2

REPORT INFORMATION
  Report Type: 
  Country: None (occurrence: None)
  Receive Date: 20040415
  Receipt Date: 20031023
  Transmission Date: 20050107
  Serious: Yes (Other)
  Sender: FDA-Public Use
  Company Number: GB-BRISTOL-MYERS SQUIBB COMPANY-12417192

PATIENT
  Age: 36 Year
  Sex: Female
  Weight: 40 kg

DRUGS (6)
  1. DIDANOSINE [Suspect]
     Indication: HIV INFECTION
     Route: 048
     Dates: start: 20020912, end: 20030822
  2. TENOFOVIR DF [Suspect]
     Indication: HIV INFECTION
     Route: 048
     Dates: start: 20020912, end: 20030814
  3. KALETRA [Concomitant]
     Indication: HIV INFECTION
     Route: 048
     Dates: start: 20020912, end: 20030822
  4. CO-TRIMOXAZOLE [Concomitant]
     Dosage: ^960 MG^
     Route: 048
     Dates: start: 19980101
  5. FLUCONAZOLE [Concomitant]
     Indication: CANDIDIASIS
     Route: 048
     Dates: start: 20030811, end: 20030822
  6. AMOXICILLIN [Concomitant]
     Indication: URINARY TRACT INFECTION
     Route: 048
     Dates: start: 20030508, end: 20030508

REACTIONS (6)
  - BLOOD BICARBONATE DECREASED [None]
  - HYPOPHOSPHATAEMIA [None]
  - LIPASE INCREASED [None]
  - OEDEMA [None]
  - PANCREATITIS [None]
  - VOMITING [None]
